FAERS Safety Report 11720568 (Version 3)
Quarter: 2016Q1

REPORT INFORMATION
  Report Type: Report from Study
  Country: US (occurrence: US)
  Receive Date: 20151110
  Receipt Date: 20160119
  Transmission Date: 20160525
  Serious: Yes (Hospitalization, Other)
  Sender: FDA-Public Use
  Company Number: US-BAYER-2015-415272

PATIENT
  Age: 67 Year
  Sex: Male
  Weight: 99.77 kg

DRUGS (10)
  1. ADEMPAS [Suspect]
     Active Substance: RIOCIGUAT
     Indication: PULMONARY ARTERIAL HYPERTENSION
     Dosage: 1.5 MG, TID
     Route: 048
  2. WARFARIN [Concomitant]
     Active Substance: WARFARIN
     Dosage: UNK
  3. LASIX [Concomitant]
     Active Substance: FUROSEMIDE
     Dosage: UNK
  4. ADEMPAS [Suspect]
     Active Substance: RIOCIGUAT
     Indication: PULMONARY ARTERIAL HYPERTENSION
     Dosage: 1 MG, TID
     Route: 048
     Dates: start: 20150713
  5. ADEMPAS [Suspect]
     Active Substance: RIOCIGUAT
     Indication: PULMONARY ARTERIAL HYPERTENSION
     Dosage: 2 MG, TID
     Route: 048
     Dates: start: 20151020
  6. ADEMPAS [Suspect]
     Active Substance: RIOCIGUAT
     Indication: PULMONARY ARTERIAL HYPERTENSION
     Dosage: 2.5 MG, TID
     Route: 048
  7. ADEMPAS [Suspect]
     Active Substance: RIOCIGUAT
     Indication: PULMONARY ARTERIAL HYPERTENSION
     Dosage: UNK
     Dates: start: 20151020
  8. ADEMPAS [Suspect]
     Active Substance: RIOCIGUAT
     Indication: PULMONARY ARTERIAL HYPERTENSION
     Dosage: 2 MG, TID
     Route: 048
  9. VELETRI [Concomitant]
     Active Substance: EPOPROSTENOL
  10. EPOPROSTENOL. [Concomitant]
     Active Substance: EPOPROSTENOL
     Dosage: UNK

REACTIONS (7)
  - Hospitalisation [None]
  - Peripheral swelling [Unknown]
  - Oedema peripheral [Unknown]
  - Device damage [Unknown]
  - Gastrooesophageal reflux disease [Unknown]
  - Nausea [Unknown]
  - Catheter management [Unknown]
